FAERS Safety Report 5440500-9 (Version None)
Quarter: 2007Q3

REPORT INFORMATION
  Report Type: 
  Country: None (occurrence: None)
  Receive Date: 20070831
  Receipt Date: 20070822
  Transmission Date: 20080115
  Serious: Yes (Other)
  Sender: FDA-Public Use
  Company Number: GB-AMGEN-US240776

PATIENT
  Sex: Female

DRUGS (3)
  1. ENBREL [Suspect]
     Indication: DRUG USE FOR UNKNOWN INDICATION
     Dosage: UNKNOWN
     Route: 065
     Dates: start: 20070801
  2. BENDROFLUAZIDE [Concomitant]
     Dosage: UNKNOWN
     Route: 065
  3. AMLODIPINE [Concomitant]
     Dosage: UNKNOWN
     Route: 065

REACTIONS (1)
  - OEDEMA PERIPHERAL [None]
